APPROVED DRUG PRODUCT: DOXYCYCLINE HYCLATE
Active Ingredient: DOXYCYCLINE HYCLATE
Strength: EQ 100MG BASE
Dosage Form/Route: TABLET;ORAL
Application: A062505 | Product #001 | TE Code: AB
Applicant: CHARTWELL SCHEDULED LLC
Approved: Sep 11, 1984 | RLD: No | RS: No | Type: RX